FAERS Safety Report 20883759 (Version 1)
Quarter: 2022Q2

REPORT INFORMATION
  Report Type: Spontaneous
  Country: AF (occurrence: None)
  Receive Date: 20220526
  Receipt Date: 20220526
  Transmission Date: 20220721
  Serious: Yes (Life-Threatening, Hospitalization, Other)
  Sender: FDA-Public Use
  Company Number: None

PATIENT
  Age: 61 Year
  Sex: Female
  Weight: 87.3 kg

DRUGS (14)
  1. LACOSAMIDE [Suspect]
     Active Substance: LACOSAMIDE
     Indication: Trigeminal neuropathy
     Dosage: FREQUENCY : TWICE A DAY;?QUANTITY: 60 TABLETS
     Route: 048
     Dates: start: 20220518, end: 20220521
  2. PRAZOSIN [Concomitant]
     Active Substance: PRAZOSIN
  3. VIMPAT [Concomitant]
     Active Substance: LACOSAMIDE
  4. FLUTICASONE PROPIONATE [Concomitant]
     Active Substance: FLUTICASONE PROPIONATE
  5. MEMANTINE [Concomitant]
     Active Substance: MEMANTINE
  6. CELECOXIB [Concomitant]
     Active Substance: CELECOXIB
  7. PROPRANOLOL [Concomitant]
     Active Substance: PROPRANOLOL HYDROCHLORIDE
  8. severest [Concomitant]
  9. QVAR [Concomitant]
     Active Substance: BECLOMETHASONE DIPROPIONATE
  10. mexilentine [Concomitant]
  11. NALTREXONE [Concomitant]
     Active Substance: NALTREXONE
  12. ONDANSETRON [Concomitant]
     Active Substance: ONDANSETRON
  13. SERTRALINE [Concomitant]
     Active Substance: SERTRALINE HYDROCHLORIDE
  14. ALBUTEROL [Concomitant]
     Active Substance: ALBUTEROL

REACTIONS (2)
  - Seizure [None]
  - Product substitution issue [None]

NARRATIVE: CASE EVENT DATE: 20220520
